FAERS Safety Report 19168755 (Version 1)
Quarter: 2021Q2

REPORT INFORMATION
  Report Type: Spontaneous
  Country: GB (occurrence: GB)
  Receive Date: 20210422
  Receipt Date: 20210422
  Transmission Date: 20210717
  Serious: Yes (Other)
  Sender: FDA-Public Use
  Company Number: GB-TEVA-2021-GB-1903431

PATIENT
  Age: 48 Year
  Sex: Male
  Weight: 102 kg

DRUGS (5)
  1. BRIMONIDINE TARTRATE. [Concomitant]
     Active Substance: BRIMONIDINE TARTRATE
     Dosage: 2 GTT DAILY; IN THE LEFT EYE
     Dates: start: 20210413
  2. FOSTAIR [Concomitant]
     Active Substance: BECLOMETHASONE\FORMOTEROL
     Dosage: 4 DOSAGE FORMS DAILY;
     Route: 055
     Dates: start: 20200417
  3. OMEPRAZOLE. [Concomitant]
     Active Substance: OMEPRAZOLE
     Dosage: 2 DOSAGE FORMS DAILY; AS ADVISED BY GASTROENTEROLOGIST FOLLOWING RECENT OESOPHAGOGASTRODUODENOSCOPY
     Dates: start: 20200408
  4. TAMSULOSIN [Suspect]
     Active Substance: TAMSULOSIN
     Dosage: 400 MICROGRAM DAILY; AS PER UROLOGIST^S ADVICE
     Dates: start: 20201229
  5. SALBUTAMOL [Concomitant]
     Active Substance: ALBUTEROL
     Dosage: ONE OR TWO PUFFS UP TO FOUR TIMES A DAY ...
     Route: 055
     Dates: start: 20200110

REACTIONS (1)
  - Floppy iris syndrome [Unknown]
